FAERS Safety Report 14872006 (Version 1)
Quarter: 2018Q2

REPORT INFORMATION
  Report Type: Spontaneous
  Country: NL (occurrence: NL)
  Receive Date: 20180509
  Receipt Date: 20180509
  Transmission Date: 20180711
  Serious: Yes (Other)
  Sender: FDA-Public Use
  Company Number: NL-009507513-1804NLD013138

PATIENT
  Sex: Male

DRUGS (1)
  1. COZAAR [Suspect]
     Active Substance: LOSARTAN POTASSIUM
     Indication: HYPERTENSION
     Dosage: UNK MG, UNK
     Route: 048

REACTIONS (2)
  - Product availability issue [Unknown]
  - Cardiac operation [Unknown]
